FAERS Safety Report 10355846 (Version 1)
Quarter: 2014Q3

REPORT INFORMATION
  Report Type: Spontaneous
  Country: US (occurrence: US)
  Receive Date: 20140801
  Receipt Date: 20140801
  Transmission Date: 20150326
  Serious: Yes (Other)
  Sender: FDA-Public Use
  Company Number: US-AMGEN-USASP2014056850

PATIENT
  Age: 93 Year
  Sex: Female

DRUGS (3)
  1. ARANESP [Suspect]
     Active Substance: DARBEPOETIN ALFA
     Indication: HAEMOGLOBIN DECREASED
     Dosage: UNK
     Route: 065
     Dates: start: 2013
  2. COUMADIN [Concomitant]
     Active Substance: WARFARIN SODIUM
  3. ARANESP [Suspect]
     Active Substance: DARBEPOETIN ALFA
     Indication: THALASSAEMIA

REACTIONS (6)
  - Atrial fibrillation [Unknown]
  - Cerebrovascular accident [Unknown]
  - Dementia [Unknown]
  - Haemoglobin decreased [Unknown]
  - Incorrect product storage [Unknown]
  - Therapeutic response decreased [Unknown]
